FAERS Safety Report 6462113-2 (Version None)
Quarter: 2009Q4

REPORT INFORMATION
  Report Type: 
  Country: None (occurrence: None)
  Receive Date: 20091130
  Receipt Date: 20091119
  Transmission Date: 20100525
  Serious: Yes (Hospitalization)
  Sender: FDA-Public Use
  Company Number: GXKR2009DE12683

PATIENT
  Age: 69 Year
  Sex: Female

DRUGS (3)
  1. DICLAC ID (NGX) [Suspect]
     Dosage: 75 MG, BID
     Route: 048
  2. DICLOFENAC AL 50 [Suspect]
     Dosage: 50 MG, TID
  3. SIOFOR [Concomitant]

REACTIONS (4)
  - ENCEPHALITIS [None]
  - NEPHROPATHY TOXIC [None]
  - RASH [None]
  - VASCULITIS [None]
